FAERS Safety Report 14744973 (Version 2)
Quarter: 2018Q3

REPORT INFORMATION
  Report Type: Spontaneous
  Country: US (occurrence: US)
  Receive Date: 20180411
  Receipt Date: 20180704
  Transmission Date: 20181010
  Serious: No
  Sender: FDA-Public Use
  Company Number: US-PFIZER INC-2018146226

PATIENT
  Age: 83 Year
  Sex: Female
  Weight: 63.5 kg

DRUGS (18)
  1. CRESTOR [Concomitant]
     Active Substance: ROSUVASTATIN CALCIUM
     Indication: BLOOD CHOLESTEROL ABNORMAL
     Dosage: 10 MG, 1X/DAY
  2. DILTIAZEM. [Concomitant]
     Active Substance: DILTIAZEM
     Indication: HEART RATE IRREGULAR
     Dosage: 1 DF, 1X/DAY (180/24 ONE CAPSULE ONCE A DAY)
  3. MAGNESIUM [Concomitant]
     Active Substance: MAGNESIUM
     Indication: CARDIOVASCULAR DISORDER
     Dosage: 250 MG, 1X/DAY(IN THE MORNING)
  4. MONTELUKAST [Concomitant]
     Active Substance: MONTELUKAST SODIUM
     Indication: HYPERSENSITIVITY
     Dosage: 10 MG, 1X/DAY (IN THE EVENING)
  5. VITAMIN D3 [Concomitant]
     Active Substance: CHOLECALCIFEROL
     Indication: SUPPLEMENTATION THERAPY
     Dosage: 1 DF, 1X/DAY (2000, IN THE EVENING WITH MEAL)
  6. LOSARTAN. [Concomitant]
     Active Substance: LOSARTAN
     Indication: BLOOD PRESSURE ABNORMAL
     Dosage: 100 MG, 1X/DAY (IN THE MORNING)
  7. KLOR?CON [Concomitant]
     Active Substance: POTASSIUM CHLORIDE
     Indication: SWELLING
     Dosage: 1 DF, 1X/DAY (10 EQ ONE TABLET IN THE MORNING)
  8. MULTAQ [Concomitant]
     Active Substance: DRONEDARONE
     Indication: CARDIOVASCULAR DISORDER
     Dosage: 400 MG, 2X/DAY (ONE TABLET IN THE MORNING AND ONE TABLET AT NIGHT)
  9. TYLENOL ARTHRITIS PAIN [Concomitant]
     Active Substance: ACETAMINOPHEN
     Dosage: UNK, AS NEEDED
  10. ELIQUIS [Concomitant]
     Active Substance: APIXABAN
     Indication: ANTICOAGULANT THERAPY
     Dosage: 5 MG, 2X/DAY
  11. FUROSEMIDE. [Concomitant]
     Active Substance: FUROSEMIDE
     Indication: SWELLING
     Dosage: 20 MG, 1X/DAY (IN THE MORNING)
  12. FOLIC ACID. [Concomitant]
     Active Substance: FOLIC ACID
     Indication: RHEUMATOID ARTHRITIS
     Dosage: 1 MG, 1X/DAY
  13. METAMUCIL [Concomitant]
     Active Substance: PLANTAGO SEED
     Indication: FUNCTIONAL GASTROINTESTINAL DISORDER
     Dosage: ONE TEASPOON A DAY AS NEEDED
  14. CALTRATE WITH VITAMIN D [Concomitant]
     Active Substance: CALCIUM CARBONATE\CHOLECALCIFEROL
     Indication: MINERAL SUPPLEMENTATION
     Dosage: 1 DF, 1X/DAY (IN THE MORNING)
  15. XELJANZ XR [Suspect]
     Active Substance: TOFACITINIB CITRATE
     Indication: RHEUMATOID ARTHRITIS
     Dosage: 11 MG, 1X/DAY
     Dates: start: 20180320
  16. LATANOPROST. [Concomitant]
     Active Substance: LATANOPROST
     Indication: GLAUCOMA
     Dosage: 1 GTT, DAILY (IN LEFT EYE AT BEDTIME)
     Route: 047
  17. PREDNISONE. [Concomitant]
     Active Substance: PREDNISONE
     Indication: INFLAMMATION
     Dosage: 5 MG, ALTERNATE DAY
  18. COQ 10 [Concomitant]
     Active Substance: UBIDECARENONE
     Indication: GASTROOESOPHAGEAL REFLUX DISEASE
     Dosage: 200 MG, 1X/DAY(IN THE EVENING)

REACTIONS (3)
  - Sinusitis [Not Recovered/Not Resolved]
  - Pyrexia [Recovering/Resolving]
  - Condition aggravated [Not Recovered/Not Resolved]

NARRATIVE: CASE EVENT DATE: 20180404
